FAERS Safety Report 17220018 (Version 5)
Quarter: 2021Q1

REPORT INFORMATION
  Report Type: Spontaneous
  Country: US (occurrence: US)
  Receive Date: 20191231
  Receipt Date: 20210216
  Transmission Date: 20210419
  Serious: Yes (Hospitalization, Disabling, Other)
  Sender: FDA-Public Use
  Company Number: US-SA-2019SA361357

PATIENT
  Age: 60 Year
  Sex: Male
  Weight: 83 kg

DRUGS (29)
  1. MULTIVITAMINS + IRON [Concomitant]
     Dosage: 1 DF, QD
  2. VITAMIN C [Concomitant]
     Active Substance: ASCORBIC ACID
     Dosage: 1 DF, QD
  3. ZINC SULFATE. [Concomitant]
     Active Substance: ZINC SULFATE
     Dosage: 1 DF, QD (6 DOSES)
  4. MYRBETRIQ [Concomitant]
     Active Substance: MIRABEGRON
     Dosage: 50 MG, QD
     Route: 048
  5. EFFEXOR [Concomitant]
     Active Substance: VENLAFAXINE HYDROCHLORIDE
     Dosage: 1 DF, BID
  6. COLACE [Concomitant]
     Active Substance: DOCUSATE SODIUM
     Indication: CONSTIPATION
     Dosage: 100 MG, BID (AS NEEDED)
     Route: 048
  7. ROXICODONE [Concomitant]
     Active Substance: OXYCODONE HYDROCHLORIDE
     Dosage: UNK
  8. DIFLUCAN [Concomitant]
     Active Substance: FLUCONAZOLE
     Dosage: 3 DF, QD
     Route: 048
  9. LASIX [Concomitant]
     Active Substance: FUROSEMIDE
     Indication: OEDEMA
     Dosage: 1 DF, PRN
     Route: 048
  10. MIRALAX [Concomitant]
     Active Substance: POLYETHYLENE GLYCOL 3350
     Dosage: 1 DF, QD
     Route: 048
  11. DUPIXENT [Suspect]
     Active Substance: DUPILUMAB
     Dosage: 300 MG, QOW
     Route: 058
     Dates: start: 20191212, end: 2020
  12. TYLENOL [Concomitant]
     Active Substance: ACETAMINOPHEN
     Dosage: 2 DF, Q6H
     Route: 048
  13. COZAAR [Concomitant]
     Active Substance: LOSARTAN POTASSIUM
     Indication: BLOOD PRESSURE SYSTOLIC INCREASED
     Dosage: 1 DF, QD
     Route: 048
     Dates: start: 20200826
  14. LACTULOSE. [Concomitant]
     Active Substance: LACTULOSE
     Dosage: 20 G, BID
     Route: 048
  15. ZANAFLEX [Concomitant]
     Active Substance: TIZANIDINE HYDROCHLORIDE
     Dosage: 1 DF, Q8H
     Route: 048
  16. LOSARTAN. [Concomitant]
     Active Substance: LOSARTAN
     Dosage: UNK
  17. AUGMENTIN [Concomitant]
     Active Substance: AMOXICILLIN\CLAVULANATE POTASSIUM
     Dosage: 1 DF, BID (FOR 14 DAYS)
  18. DUPIXENT [Suspect]
     Active Substance: DUPILUMAB
     Indication: DERMATITIS ATOPIC
     Dosage: 600 MG, 1X
     Route: 058
     Dates: start: 20191201, end: 20191201
  19. OXYCODONE [Concomitant]
     Active Substance: OXYCODONE
     Indication: PAIN
     Dosage: 1 DF, Q4H
     Route: 048
  20. LYRICA [Concomitant]
     Active Substance: PREGABALIN
     Dosage: 1 DF, TID
  21. LOSARTAN. [Concomitant]
     Active Substance: LOSARTAN
     Dosage: 50 MG
     Dates: start: 20200823
  22. MAGNESIUM OXIDE. [Concomitant]
     Active Substance: MAGNESIUM OXIDE
     Dosage: 250 MG, BID (IN MORNING AND EVENING)
     Route: 048
  23. XIFAXAN [Concomitant]
     Active Substance: RIFAXIMIN
     Dosage: 2 DF, QD
  24. VERAPAMIL [Concomitant]
     Active Substance: VERAPAMIL HYDROCHLORIDE
     Indication: HYPERTENSION
     Dosage: UNK
  25. CATAPRES [Concomitant]
     Active Substance: CLONIDINE HYDROCHLORIDE
     Dosage: 1 DF, BID (IN MORNING AND EVENING)
  26. LOSARTAN. [Concomitant]
     Active Substance: LOSARTAN
     Dosage: 100 MG
  27. PLAVIX [Concomitant]
     Active Substance: CLOPIDOGREL BISULFATE
     Dosage: 75 MG, QD
     Route: 048
  28. ALDACTONE [Concomitant]
     Active Substance: SPIRONOLACTONE
     Dosage: UNK
     Dates: start: 20200826
  29. SPIRONOLACTONE. [Concomitant]
     Active Substance: SPIRONOLACTONE
     Indication: BLOOD PRESSURE SYSTOLIC INCREASED
     Dosage: 1 DF, QD
     Route: 048

REACTIONS (12)
  - Thrombocytopenia [Recovering/Resolving]
  - Surgery [Recovering/Resolving]
  - Iron deficiency anaemia [Recovering/Resolving]
  - Infection [Not Recovered/Not Resolved]
  - Peripheral artery stenosis [Recovering/Resolving]
  - Peripheral vascular disorder [Recovering/Resolving]
  - Gait disturbance [Recovering/Resolving]
  - Palpatory finding abnormal [Recovering/Resolving]
  - Weight decreased [Recovering/Resolving]
  - Walking aid user [Recovering/Resolving]
  - Skin ulcer [Recovering/Resolving]
  - Dermatitis atopic [Unknown]

NARRATIVE: CASE EVENT DATE: 2020
